FAERS Safety Report 12099825 (Version 1)
Quarter: 2016Q1

REPORT INFORMATION
  Report Type: Spontaneous
  Country: US (occurrence: US)
  Receive Date: 20160222
  Receipt Date: 20160222
  Transmission Date: 20160526
  Serious: Yes (Other)
  Sender: FDA-Public Use
  Company Number: US-CIPLA LTD.-2016US01323

PATIENT

DRUGS (1)
  1. ANASTROZOLE. [Suspect]
     Active Substance: ANASTROZOLE
     Indication: LUTEINISING HORMONE DEFICIENCY
     Dosage: 1 MG, QD
     Route: 065

REACTIONS (2)
  - Aggression [Recovered/Resolved]
  - Hair growth abnormal [Recovered/Resolved]
